FAERS Safety Report 9741879 (Version 2)
Quarter: 2014Q1

REPORT INFORMATION
  Report Type: Report from Study
  Country: NL (occurrence: NL)
  Receive Date: 20131210
  Receipt Date: 20140113
  Transmission Date: 20141002
  Serious: Yes (Death)
  Sender: FDA-Public Use
  Company Number: PHHY2013NL143633

PATIENT
  Sex: Male

DRUGS (7)
  1. ZOMETA [Suspect]
     Indication: PROSTATE CANCER METASTATIC
     Dosage: 4 MG / 100 ML, ONCE EVERY 4 WEEKS
     Route: 042
     Dates: start: 201210
  2. ZOMETA [Suspect]
     Dosage: 4 MG / 100 ML, ONCE EVERY 4 WEEKS
     Route: 042
     Dates: start: 20121106
  3. ZOMETA [Suspect]
     Dosage: 4 MG / 100 ML, ONCE EVERY 4 WEEKS
     Route: 042
     Dates: start: 20131017
  4. ZOLADEX [Concomitant]
     Dosage: UNK UKN, UNK
  5. FENTANYL [Concomitant]
     Dosage: UNK UKN, UNK
  6. PREDNISONE [Concomitant]
     Dosage: UNK UKN, UNK
  7. OXYNORM [Concomitant]
     Dosage: UNK UKN, UNK

REACTIONS (1)
  - Death [Fatal]
